FAERS Safety Report 13954115 (Version 2)
Quarter: 2017Q3

REPORT INFORMATION
  Report Type: Spontaneous
  Country: ZA (occurrence: ZA)
  Receive Date: 20170911
  Receipt Date: 20170922
  Transmission Date: 20171128
  Serious: Yes (Other)
  Sender: FDA-Public Use
  Company Number: ZA-CIPLA LTD.-2017ZA16067

PATIENT

DRUGS (7)
  1. LAMIVUDINE. [Suspect]
     Active Substance: LAMIVUDINE
     Indication: HIV INFECTION
     Dosage: 2 TABS A DAY
     Route: 048
  2. BEZAFIBRATE [Suspect]
     Active Substance: BEZAFIBRATE
     Indication: HYPERLIPIDAEMIA
     Dosage: 1 TAB A DAY
     Route: 048
  3. ABACAVIR. [Suspect]
     Active Substance: ABACAVIR
     Indication: HIV INFECTION
     Dosage: 2 TABS A DAY
     Route: 048
     Dates: start: 20170407
  4. RITONAVIR. [Suspect]
     Active Substance: RITONAVIR
     Indication: HIV INFECTION
     Dosage: 1 TAB A DAY
     Route: 048
  5. ATAZANAVIR [Suspect]
     Active Substance: ATAZANAVIR
     Indication: HIV INFECTION
     Dosage: 2 TABS, BID
     Route: 048
  6. COZOLE [Suspect]
     Active Substance: SULFAMETHOXAZOLE\TRIMETHOPRIM
     Indication: RESPIRATORY TRACT INFECTION
     Dosage: 1 TAB A DAY
     Route: 048
  7. FLUVASTATIN [Suspect]
     Active Substance: FLUVASTATIN SODIUM
     Indication: HYPERCHOLESTEROLAEMIA
     Dosage: 1 TAB A DAY
     Route: 048

REACTIONS (8)
  - Abdominal pain [Recovered/Resolved]
  - Throat tightness [Unknown]
  - Nausea [Recovered/Resolved]
  - Rash [Recovered/Resolved]
  - Gastrointestinal disorder [Unknown]
  - Vomiting [Recovered/Resolved]
  - Asthenia [Recovered/Resolved]
  - Skin reaction [Unknown]

NARRATIVE: CASE EVENT DATE: 20170410
